FAERS Safety Report 10150020 (Version 1)
Quarter: 2014Q2

REPORT INFORMATION
  Report Type: Spontaneous
  Country: US (occurrence: US)
  Receive Date: 20140502
  Receipt Date: 20140502
  Transmission Date: 20141212
  Serious: No
  Sender: FDA-Public Use
  Company Number: US-LUNDBECK-DKLU1098958

PATIENT
  Age: 6 Year
  Sex: Male

DRUGS (1)
  1. SABRIL     (TABLET) [Suspect]
     Indication: INFANTILE SPASMS
     Route: 048
     Dates: start: 20100520

REACTIONS (1)
  - Strabismus [Unknown]
